FAERS Safety Report 7713561-1 (Version None)
Quarter: 2011Q3

REPORT INFORMATION
  Report Type: 
  Country: None (occurrence: None)
  Receive Date: 20110826
  Receipt Date: 20110824
  Transmission Date: 20111222
  Serious: Yes (Life-Threatening, Hospitalization, Disabling)
  Sender: FDA-Public Use
  Company Number: FI-GENZYME-FABR-1001953

PATIENT
  Age: 25 Year
  Sex: Male

DRUGS (2)
  1. FABRAZYME [Suspect]
     Dosage: 0.5 MG/KG, UNK
     Route: 042
     Dates: start: 20060306
  2. FABRAZYME [Suspect]
     Indication: FABRY'S DISEASE
     Dosage: 1 MG/KG, Q2W
     Route: 042

REACTIONS (2)
  - RENAL FAILURE [None]
  - METABOLIC DISORDER [None]
